FAERS Safety Report 8818455 (Version 1)
Quarter: 2012Q4

REPORT INFORMATION
  Report Type: 
  Country: TR (occurrence: TR)
  Receive Date: 20121001
  Receipt Date: 20121001
  Transmission Date: 20130627
  Serious: Yes (Other)
  Sender: FDA-Public Use
  Company Number: TR-ELI_LILLY_AND_COMPANY-TR201209006934

PATIENT
  Sex: Male
  Weight: 70 kg

DRUGS (3)
  1. FORSTEO [Suspect]
     Dosage: UNK
     Dates: start: 20120825, end: 20120925
  2. PLANOR [Concomitant]
     Dosage: 1 DF, qd
     Dates: start: 2011
  3. FLOMAX [Concomitant]
     Dosage: 1 DF, qd
     Dates: start: 2011

REACTIONS (4)
  - Vision blurred [Recovering/Resolving]
  - Pharyngeal oedema [Recovering/Resolving]
  - VIIth nerve paralysis [Recovering/Resolving]
  - Lip swelling [Recovering/Resolving]
